FAERS Safety Report 10472715 (Version 1)
Quarter: 2014Q3

REPORT INFORMATION
  Report Type: Spontaneous
  Country: US (occurrence: US)
  Receive Date: 20140924
  Receipt Date: 20140924
  Transmission Date: 20150326
  Serious: No
  Sender: FDA-Public Use
  Company Number: US-BANPHARM-20131868

PATIENT
  Age: 86 Year
  Sex: Female
  Weight: 54.43 kg

DRUGS (3)
  1. METOPROLOL TARTRATE 25 MG [Concomitant]
     Dosage: HALF TABLET, BID,
  2. LOPERAMIDE HCL [Suspect]
     Active Substance: LOPERAMIDE HYDROCHLORIDE
     Indication: DIARRHOEA
     Dosage: 1 DF,
     Dates: start: 20131021, end: 20131021
  3. ISOSORBIDE MONONITRATE 30 MG [Concomitant]
     Dosage: ONCE A DAY,

REACTIONS (2)
  - Dizziness [Recovered/Resolved]
  - Malaise [Unknown]

NARRATIVE: CASE EVENT DATE: 20131021
